FAERS Safety Report 4663573-X (Version None)
Quarter: 2005Q2

REPORT INFORMATION
  Report Type: 
  Country: None (occurrence: None)
  Receive Date: 20050517
  Receipt Date: 20050505
  Transmission Date: 20051028
  Serious: Yes (Hospitalization)
  Sender: FDA-Public Use
  Company Number: US-AMGEN-US131844

PATIENT
  Sex: Female

DRUGS (1)
  1. PROCRIT [Suspect]
     Indication: RENAL FAILURE CHRONIC
     Dates: start: 19910101

REACTIONS (8)
  - BONE PAIN [None]
  - FALL [None]
  - HAEMOGLOBIN DECREASED [None]
  - HEADACHE [None]
  - KNEE ARTHROPLASTY [None]
  - MYALGIA [None]
  - SHOULDER ARTHROPLASTY [None]
  - SYNCOPE [None]
